FAERS Safety Report 25209773 (Version 1)
Quarter: 2025Q2

REPORT INFORMATION
  Report Type: Spontaneous
  Country: AT (occurrence: AT)
  Receive Date: 20250417
  Receipt Date: 20250417
  Transmission Date: 20250717
  Serious: Yes (Other)
  Sender: BIOGEN
  Company Number: AT-BIOGEN-2025BI01307445

PATIENT
  Sex: Female

DRUGS (1)
  1. TECFIDERA [Suspect]
     Active Substance: DIMETHYL FUMARATE
     Indication: Product used for unknown indication
     Route: 050
     Dates: start: 2020, end: 202503

REACTIONS (2)
  - Fanconi syndrome acquired [Not Recovered/Not Resolved]
  - Lymphocyte count abnormal [Unknown]

NARRATIVE: CASE EVENT DATE: 20240101
